FAERS Safety Report 21651878 (Version 5)
Quarter: 2024Q4

REPORT INFORMATION
  Report Type: Spontaneous
  Country: US (occurrence: US)
  Receive Date: 20221128
  Receipt Date: 20241108
  Transmission Date: 20250114
  Serious: Yes (Death, Other)
  Sender: NOVARTIS
  Company Number: US-002147023-NVSC2022US263184

PATIENT
  Age: 64 Year
  Sex: Male

DRUGS (8)
  1. ENTRESTO [Suspect]
     Active Substance: SACUBITRIL\VALSARTAN
     Indication: Product used for unknown indication
     Dosage: 2 DOSAGE FORM, BID
     Route: 048
     Dates: start: 20210820
  2. FUROSEMIDE [Concomitant]
     Active Substance: FUROSEMIDE
     Indication: Product used for unknown indication
     Dosage: 1 DOSAGE FORM, PRN
     Route: 048
     Dates: start: 20210821
  3. COREG [Concomitant]
     Active Substance: CARVEDILOL
     Indication: Product used for unknown indication
     Dosage: 1 DOSAGE FORM, BID
     Route: 048
     Dates: start: 20210820
  4. HYDRALAZINE [Concomitant]
     Active Substance: HYDRALAZINE HYDROCHLORIDE
     Indication: Product used for unknown indication
     Dosage: 2 DOSAGE FORM, TID (2 PM AND 9 PM)
     Route: 048
     Dates: start: 20210820
  5. APIXABAN [Concomitant]
     Active Substance: APIXABAN
     Indication: Product used for unknown indication
     Dosage: 1 DOSAGE FORM, BID
     Route: 048
     Dates: start: 20210820
  6. ASPIRIN [Concomitant]
     Active Substance: ASPIRIN
     Indication: Product used for unknown indication
     Dosage: 1 DOSAGE FORM, QD (DELAYED RELEASE TABLET) (MORNING)
     Route: 048
     Dates: start: 20210821
  7. ROSUVASTATIN [Concomitant]
     Active Substance: ROSUVASTATIN
     Indication: Product used for unknown indication
     Dosage: 2 DOSAGE FORM, QD (AT BEDTIME)
     Route: 048
     Dates: start: 20210820
  8. SPIRONOLACTONE [Concomitant]
     Active Substance: SPIRONOLACTONE
     Indication: Product used for unknown indication
     Dosage: 1 DOSAGE FORM, BID
     Route: 048
     Dates: start: 20210820

REACTIONS (23)
  - Cardiac failure congestive [Fatal]
  - Dyspnoea [Fatal]
  - Angioedema [Fatal]
  - Peripheral swelling [Fatal]
  - Lip swelling [Fatal]
  - Swollen tongue [Fatal]
  - Pharyngeal swelling [Fatal]
  - Dysphagia [Fatal]
  - Death [Fatal]
  - Blindness [Unknown]
  - Vision blurred [Unknown]
  - Paraesthesia [Unknown]
  - Hypoacusis [Not Recovered/Not Resolved]
  - Abdominal pain [Unknown]
  - Visual impairment [Unknown]
  - Asthenia [Unknown]
  - Fatigue [Unknown]
  - Somnolence [Unknown]
  - Skin laceration [Unknown]
  - Speech disorder [Not Recovered/Not Resolved]
  - Choking sensation [Unknown]
  - Nausea [Unknown]
  - Dizziness [Unknown]
